FAERS Safety Report 8034411-2 (Version None)
Quarter: 2012Q1

REPORT INFORMATION
  Report Type: 
  Country: None (occurrence: None)
  Receive Date: 20120110
  Receipt Date: 20111229
  Transmission Date: 20120608
  Serious: Yes (Hospitalization)
  Sender: FDA-Public Use
  Company Number: TR-MEDIMMUNE-MEDI-0014369

PATIENT
  Sex: Female
  Weight: 3.8 kg

DRUGS (4)
  1. SYNAGIS [Suspect]
     Route: 030
     Dates: start: 20111026, end: 20111226
  2. POTASSIUM CANRENOATE [Concomitant]
     Route: 048
  3. ENALAPRIL MALEATE [Concomitant]
     Route: 048
  4. FUROSEMIDE SODIUM [Concomitant]
     Route: 048

REACTIONS (3)
  - NASOPHARYNGITIS [None]
  - LUNG INFECTION [None]
  - COUGH [None]
